FAERS Safety Report 13378273 (Version 1)
Quarter: 2017Q1

REPORT INFORMATION
  Report Type: Report from Study
  Country: US (occurrence: PK)
  Receive Date: 20170328
  Receipt Date: 20170328
  Transmission Date: 20170429
  Serious: Yes (Death, Hospitalization)
  Sender: FDA-Public Use
  Company Number: US-SUNOVION-2017SUN001196

PATIENT
  Age: 56 Year
  Sex: Male

DRUGS (1)
  1. INDACATEROL [Suspect]
     Active Substance: INDACATEROL
     Indication: CHRONIC OBSTRUCTIVE PULMONARY DISEASE
     Dosage: 300 ?G, QD
     Route: 055
     Dates: start: 20120314

REACTIONS (7)
  - Rales [Unknown]
  - Lung infection [Unknown]
  - Cardio-respiratory arrest [Fatal]
  - Cough [Unknown]
  - Dyspnoea [Unknown]
  - Pneumonia aspiration [Fatal]
  - Wheezing [Unknown]

NARRATIVE: CASE EVENT DATE: 20170224
